FAERS Safety Report 6697272-X (Version None)
Quarter: 2010Q2

REPORT INFORMATION
  Report Type: 
  Country: None (occurrence: None)
  Receive Date: 20100426
  Receipt Date: 20100420
  Transmission Date: 20101027
  Serious: Yes (Life-Threatening, Hospitalization)
  Sender: FDA-Public Use
  Company Number: FR-CELGENEUS-056-20785-10040871

PATIENT
  Sex: Female
  Weight: 43 kg

DRUGS (4)
  1. THALIDOMIDE [Suspect]
     Route: 048
     Dates: start: 19990101
  2. THALIDOMIDE [Suspect]
     Route: 048
     Dates: start: 20060201, end: 20100301
  3. THALIDOMIDE [Suspect]
     Route: 048
     Dates: start: 20050518
  4. COLCHICINE [Concomitant]
     Route: 048
     Dates: start: 20010101, end: 20100301

REACTIONS (1)
  - BEHCET'S SYNDROME [None]
